FAERS Safety Report 9645671 (Version 5)
Quarter: 2014Q1

REPORT INFORMATION
  Report Type: Spontaneous
  Country: US (occurrence: US)
  Receive Date: 20131025
  Receipt Date: 20140321
  Transmission Date: 20141002
  Serious: Yes (Death, Hospitalization)
  Sender: FDA-Public Use
  Company Number: US-MERCK-1310USA008498

PATIENT
  Age: 82 Year
  Sex: Male
  Weight: 92.63 kg

DRUGS (2)
  1. SINEMET CR [Suspect]
     Indication: PARKINSON^S DISEASE
     Dosage: QD
     Route: 048
     Dates: start: 20130904, end: 20130914
  2. IMDUR [Suspect]
     Dosage: UNK
     Route: 048

REACTIONS (9)
  - Death [Fatal]
  - Aggression [Not Recovered/Not Resolved]
  - Confusional state [Recovered/Resolved]
  - Slow speech [Recovered/Resolved]
  - Abnormal behaviour [Recovering/Resolving]
  - Abasia [Not Recovered/Not Resolved]
  - Speech disorder [Not Recovered/Not Resolved]
  - Dysphagia [Unknown]
  - Mental disorder [Unknown]
